FAERS Safety Report 6526393-7 (Version None)
Quarter: 2009Q4

REPORT INFORMATION
  Report Type: 
  Country: None (occurrence: None)
  Receive Date: 20091229
  Receipt Date: 20091222
  Transmission Date: 20100525
  Serious: Yes (Other)
  Sender: FDA-Public Use
  Company Number: 2009SP025464

PATIENT
  Age: 73 Year
  Sex: Male

DRUGS (2)
  1. INTEGRILIN [Suspect]
     Indication: ANGIOPLASTY
     Dosage: ; ONCE; IV
     Route: 042
  2. UNFRACTIONATED HEPARIN [Concomitant]

REACTIONS (7)
  - CATHETER SITE DISCHARGE [None]
  - DEEP VEIN THROMBOSIS [None]
  - DRUG SPECIFIC ANTIBODY PRESENT [None]
  - MYOCARDIAL INFARCTION [None]
  - PETECHIAE [None]
  - THROMBOCYTOPENIA [None]
  - THROMBOSIS IN DEVICE [None]
